FAERS Safety Report 5717696-4 (Version None)
Quarter: 2008Q2

REPORT INFORMATION
  Report Type: 
  Country: None (occurrence: None)
  Receive Date: 20080425
  Receipt Date: 20080411
  Transmission Date: 20081010
  Serious: Yes (Hospitalization)
  Sender: FDA-Public Use
  Company Number: KP-AMGEN-US274177

PATIENT
  Sex: Female

DRUGS (3)
  1. PANITUMUMAB [Suspect]
     Indication: SQUAMOUS CELL CARCINOMA
     Route: 042
     Dates: start: 20071127
  2. CISPLATIN [Concomitant]
  3. FLUOROURACIL [Concomitant]

REACTIONS (2)
  - ASTHENIA [None]
  - NEUTROPENIA [None]
